FAERS Safety Report 9500144 (Version 2)
Quarter: 2013Q3

REPORT INFORMATION
  Report Type: Report from Study
  Country: US (occurrence: US)
  Receive Date: 20130905
  Receipt Date: 20130930
  Transmission Date: 20140515
  Serious: Yes (Hospitalization, Other)
  Sender: FDA-Public Use
  Company Number: PHEH2013US018548

PATIENT
  Sex: Female

DRUGS (7)
  1. BLINDED NO TREATMENT RECEIVED [Suspect]
     Indication: BREAST CANCER METASTATIC
     Dosage: CODE NOT BROKEN
     Route: 048
     Dates: start: 201304
  2. BLINDED PLACEBO [Suspect]
     Indication: BREAST CANCER METASTATIC
     Dosage: CODE NOT BROKEN
     Route: 048
     Dates: start: 201304
  3. BLINDED AFINITOR [Suspect]
     Dosage: CODE NOT BROKEN
     Route: 048
     Dates: end: 201307
  4. BLINDED NO TREATMENT RECEIVED [Suspect]
     Dosage: CODE NOT BROKEN
     Route: 048
     Dates: end: 201307
  5. BLINDED PLACEBO [Suspect]
     Dosage: CODE NOT BROKEN
     Route: 048
     Dates: end: 201307
  6. COMPARATOR EXEMESTANE [Suspect]
     Indication: BREAST CANCER METASTATIC
     Dosage: UNK
     Dates: start: 201304, end: 201307
  7. BLINDED AFINITOR [Suspect]
     Indication: BREAST CANCER METASTATIC
     Dosage: CODE NOT BROKEN
     Route: 048
     Dates: start: 201304

REACTIONS (2)
  - General physical health deterioration [Unknown]
  - Mucosal inflammation [Unknown]
